FAERS Safety Report 21238321 (Version 2)
Quarter: 2022Q4

REPORT INFORMATION
  Report Type: Spontaneous
  Country: US (occurrence: US)
  Receive Date: 20220822
  Receipt Date: 20221019
  Transmission Date: 20230112
  Serious: No
  Sender: FDA-Public Use
  Company Number: US-PFIZER INC-202201051715

PATIENT
  Age: 14 Year
  Sex: Female
  Weight: 43.73 kg

DRUGS (2)
  1. GENOTROPIN [Suspect]
     Active Substance: SOMATROPIN
     Indication: Trisomy 21
     Dosage: 3.2 MG, DAILY
  2. GENOTROPIN [Suspect]
     Active Substance: SOMATROPIN
     Dosage: 3.2 MG, DAILY

REACTIONS (5)
  - Drug dose omission by device [Unknown]
  - Dose calculation error [Unknown]
  - Device breakage [Unknown]
  - Device issue [Unknown]
  - Device delivery system issue [Unknown]
